FAERS Safety Report 9335206 (Version 2)
Quarter: 2014Q2

REPORT INFORMATION
  Report Type: Report from Study
  Country: IL (occurrence: IL)
  Receive Date: 20130606
  Receipt Date: 20140410
  Transmission Date: 20141212
  Serious: Yes (Other)
  Sender: FDA-Public Use
  Company Number: IL-GLAXOSMITHKLINE-B0897335A

PATIENT
  Age: 44 Year
  Sex: Male

DRUGS (1)
  1. RETIGABINE [Suspect]
     Indication: PARTIAL SEIZURES
     Dosage: 600MG PER DAY
     Route: 048
     Dates: start: 20070507

REACTIONS (1)
  - Retinal pigmentation [Not Recovered/Not Resolved]
